FAERS Safety Report 15797440 (Version 1)
Quarter: 2019Q1

REPORT INFORMATION
  Report Type: Report from Study
  Country: IT (occurrence: IT)
  Receive Date: 20190108
  Receipt Date: 20190108
  Transmission Date: 20190417
  Serious: Yes (Other)
  Sender: FDA-Public Use
  Company Number: IT-ROCHE-2241004

PATIENT
  Age: 50 Year
  Sex: Female

DRUGS (2)
  1. CLONAZEPAM. [Suspect]
     Active Substance: CLONAZEPAM
     Indication: EXTRA DOSE ADMINISTERED
     Dosage: UNIT DOSE: 100 [DRP]
     Route: 048
     Dates: start: 20181002, end: 20181002
  2. BROMAZEPAM [Suspect]
     Active Substance: BROMAZEPAM
     Indication: EXTRA DOSE ADMINISTERED
     Route: 048
     Dates: start: 20181002, end: 20181002

REACTIONS (3)
  - Depressed mood [Recovering/Resolving]
  - Intentional overdose [Unknown]
  - Sopor [Recovering/Resolving]

NARRATIVE: CASE EVENT DATE: 20181002
